FAERS Safety Report 23889622 (Version 1)
Quarter: 2024Q2

REPORT INFORMATION
  Report Type: Report from Study
  Country: US (occurrence: US)
  Receive Date: 20240523
  Receipt Date: 20240523
  Transmission Date: 20240716
  Serious: Yes (Death, Other)
  Sender: FDA-Public Use
  Company Number: US-BIOGEN-2024BI01265137

PATIENT
  Sex: Female

DRUGS (5)
  1. TYSABRI [Suspect]
     Active Substance: NATALIZUMAB
     Indication: Multiple sclerosis
     Route: 050
     Dates: start: 20080428, end: 20101215
  2. TYSABRI [Suspect]
     Active Substance: NATALIZUMAB
     Route: 050
     Dates: start: 20110321, end: 20151014
  3. TYSABRI [Suspect]
     Active Substance: NATALIZUMAB
     Route: 050
     Dates: start: 20160113, end: 20170920
  4. TYSABRI [Suspect]
     Active Substance: NATALIZUMAB
     Route: 050
     Dates: start: 20180110, end: 20220331
  5. TYSABRI [Suspect]
     Active Substance: NATALIZUMAB
     Dosage: EXTENDED INTERVAL DOSING
     Route: 050
     Dates: start: 20220512, end: 20230630

REACTIONS (2)
  - Death [Fatal]
  - Progressive multifocal leukoencephalopathy [Unknown]
